FAERS Safety Report 14680832 (Version 2)
Quarter: 2018Q3

REPORT INFORMATION
  Report Type: Spontaneous
  Country: US (occurrence: US)
  Receive Date: 20180326
  Receipt Date: 20180720
  Transmission Date: 20181010
  Serious: Yes (Other)
  Sender: FDA-Public Use
  Company Number: US-BAYER-2018-058041

PATIENT
  Age: 19 Year
  Sex: Female
  Weight: 115 kg

DRUGS (1)
  1. KYLEENA [Suspect]
     Active Substance: LEVONORGESTREL
     Indication: CONTRACEPTION
     Dosage: 17.5 MCG/24HR, CONT
     Route: 015
     Dates: start: 20170823, end: 20180320

REACTIONS (3)
  - Genital haemorrhage [None]
  - Pain [None]
  - Device dislocation [None]

NARRATIVE: CASE EVENT DATE: 20180320
